FAERS Safety Report 18436827 (Version 2)
Quarter: 2020Q4

REPORT INFORMATION
  Report Type: Report from Study
  Country: UA (occurrence: UA)
  Receive Date: 20201028
  Receipt Date: 20201102
  Transmission Date: 20210114
  Serious: Yes (Other)
  Sender: FDA-Public Use
  Company Number: UA-PFIZER INC-2020414283

PATIENT
  Age: 62 Year
  Sex: Female
  Weight: 82.5 kg

DRUGS (4)
  1. PALBOCICLIB [Suspect]
     Active Substance: PALBOCICLIB
     Indication: BREAST CANCER
     Dosage: 125 MG, 1X/DAY
     Route: 048
     Dates: start: 20200930, end: 20201013
  2. G1T 48 [RINTODESTRANT] [Suspect]
     Active Substance: RINTODESTRANT
     Indication: BREAST CANCER
     Dosage: 800 MG, 1X/DAY
     Route: 048
     Dates: start: 20200930, end: 20201015
  3. ACIDUM ZOLEDRONICUM [Concomitant]
     Active Substance: ZOLEDRONIC ACID
     Indication: FRUCTOSE-1,6-BISPHOSPHATASE DEFICIENCY
     Dosage: UNK
     Dates: start: 20200910
  4. LOPERAMIDE [LOPERAMIDE OXIDE] [Concomitant]
     Active Substance: LOPERAMIDE OXIDE
     Indication: DIARRHOEA
     Dosage: UNK
     Dates: start: 20201009, end: 20201009

REACTIONS (1)
  - COVID-19 pneumonia [Recovering/Resolving]

NARRATIVE: CASE EVENT DATE: 20201010
